FAERS Safety Report 24719335 (Version 1)
Quarter: 2024Q4

REPORT INFORMATION
  Report Type: Report from Study
  Country: DE (occurrence: DE)
  Receive Date: 20241210
  Receipt Date: 20241210
  Transmission Date: 20250114
  Serious: Yes (Hospitalization)
  Sender: TAKEDA
  Company Number: DE-TAKEDA-DE202014533

PATIENT
  Sex: Female
  Weight: 73 kg

DRUGS (5)
  1. VELAGLUCERASE ALFA [Suspect]
     Active Substance: VELAGLUCERASE ALFA
     Indication: Gaucher^s disease
     Dosage: 43 INTERNATIONAL UNIT/KILOGRAM, 1X/2WKS
     Dates: start: 201210, end: 20180223
  2. VELAGLUCERASE ALFA [Suspect]
     Active Substance: VELAGLUCERASE ALFA
     Dosage: 49 INTERNATIONAL UNIT/KILOGRAM, Q2WEEKS
     Dates: start: 20180223, end: 20240229
  3. VELAGLUCERASE ALFA [Suspect]
     Active Substance: VELAGLUCERASE ALFA
     Dosage: 56 INTERNATIONAL UNIT/KILOGRAM, Q2WEEKS
     Dates: start: 20240301
  4. CANDESARTAN CILEXETIL\HYDROCHLOROTHIAZIDE [Concomitant]
     Active Substance: CANDESARTAN CILEXETIL\HYDROCHLOROTHIAZIDE
     Indication: Hypertension
  5. PANTOZOL [ERYTHROMYCIN ETHYLSUCCINATE;SULFAFURAZOLE] [Concomitant]
     Indication: Gastrooesophageal reflux disease

REACTIONS (1)
  - Pancreatic cystadenoma [Recovered/Resolved with Sequelae]

NARRATIVE: CASE EVENT DATE: 20170908
